FAERS Safety Report 16804862 (Version 1)
Quarter: 2019Q3

REPORT INFORMATION
  Report Type: Spontaneous
  Country: US (occurrence: US)
  Receive Date: 20190724
  Receipt Date: 20190724
  Transmission Date: 20191005
  Serious: Yes (Disabling, Other)
  Sender: FDA-Public Use
  Company Number: None

PATIENT
  Age: 62 Year
  Sex: Male
  Weight: 132 kg

DRUGS (16)
  1. EQUATE EYE ALLERGY RELIEF DROPS [Suspect]
     Active Substance: NAPHAZOLINE HYDROCHLORIDE\PHENIRAMINE MALEATE
     Indication: MULTIPLE ALLERGIES
     Dosage: ?          QUANTITY:1 OR 2 DROPS;OTHER FREQUENCY:UP TO 4X DAILY;OTHER ROUTE:EYE DROPS?
     Dates: start: 20170617, end: 20190704
  2. XIGDUO XR [Concomitant]
     Active Substance: DAPAGLIFLOZIN PROPANEDIOL\METFORMIN HYDROCHLORIDE
  3. FLUTICASONE. [Concomitant]
     Active Substance: FLUTICASONE
  4. EQUATE COMFORT [Suspect]
     Active Substance: CARBOXYMETHYLCELLULOSE SODIUM\HYPROMELLOSES
  5. GCMFIBMZIL TAB [Concomitant]
  6. OMEPRAZOLE. [Concomitant]
     Active Substance: OMEPRAZOLE
  7. IRBESARTZM TAB [Concomitant]
  8. ASPIRIN 81MG [Concomitant]
     Active Substance: ASPIRIN
  9. SPIRIVA RCSPINAT [Concomitant]
  10. MULTIVITAMIN [Concomitant]
     Active Substance: VITAMINS
  11. EQUATE EYE ALLERGY RELIEF DROPS [Suspect]
     Active Substance: NAPHAZOLINE HYDROCHLORIDE\PHENIRAMINE MALEATE
     Indication: DRY EYE
     Dosage: ?          QUANTITY:1 OR 2 DROPS;OTHER FREQUENCY:UP TO 4X DAILY;OTHER ROUTE:EYE DROPS?
     Dates: start: 20170617, end: 20190704
  12. XOPENX NEBULIZER [Concomitant]
  13. PROAIR HFA [Concomitant]
     Active Substance: ALBUTEROL SULFATE
  14. AMLODIPINC TAB [Concomitant]
  15. RANITIDINE. [Concomitant]
     Active Substance: RANITIDINE
  16. JANUMET XR [Concomitant]
     Active Substance: METFORMIN HYDROCHLORIDE\SITAGLIPTIN PHOSPHATE

REACTIONS (13)
  - Eye infection [None]
  - Fatigue [None]
  - Hypersomnia [None]
  - Recalled product administered [None]
  - Fall [None]
  - Headache [None]
  - Vertigo positional [None]
  - Balance disorder [None]
  - Eye disorder [None]
  - Impaired work ability [None]
  - Vision blurred [None]
  - Visual impairment [None]
  - Photophobia [None]

NARRATIVE: CASE EVENT DATE: 20190623
